FAERS Safety Report 18232040 (Version 3)
Quarter: 2020Q4

REPORT INFORMATION
  Report Type: Spontaneous
  Country: JP (occurrence: JP)
  Receive Date: 20200904
  Receipt Date: 20201104
  Transmission Date: 20210113
  Serious: Yes (Hospitalization, Other)
  Sender: FDA-Public Use
  Company Number: JP-BRISTOL-MYERS SQUIBB COMPANY-BMS-2020-063212

PATIENT
  Sex: Male

DRUGS (3)
  1. OPDIVO [Suspect]
     Active Substance: NIVOLUMAB
     Indication: RENAL CELL CARCINOMA
     Dosage: 250 MILLIGRAM, Q3WK
     Route: 041
     Dates: end: 20200603
  2. YERVOY [Suspect]
     Active Substance: IPILIMUMAB
     Indication: METASTATIC RENAL CELL CARCINOMA
     Dosage: 1 MILLIGRAM/KILOGRAM, Q3WK
     Route: 041
     Dates: end: 20200603
  3. OPDIVO [Suspect]
     Active Substance: NIVOLUMAB
     Dosage: 250 MILLIGRAM
     Route: 041
     Dates: end: 20200720

REACTIONS (6)
  - Malaise [Unknown]
  - Dementia [Unknown]
  - Oxygen saturation decreased [Unknown]
  - Heat illness [Unknown]
  - Encephalitis [Unknown]
  - Diplopia [Unknown]

NARRATIVE: CASE EVENT DATE: 2020
